FAERS Safety Report 23859952 (Version 1)
Quarter: 2024Q2

REPORT INFORMATION
  Report Type: Spontaneous
  Country: US (occurrence: US)
  Receive Date: 20240515
  Receipt Date: 20240515
  Transmission Date: 20240716
  Serious: No
  Sender: FDA-Public Use
  Company Number: US-SA-SAC20240509000330

PATIENT
  Age: 22 Year
  Sex: Female
  Weight: 95.7 kg

DRUGS (1)
  1. DUPIXENT [Suspect]
     Active Substance: DUPILUMAB
     Indication: Dermatitis atopic
     Dosage: 600 MG, 1X
     Route: 058
     Dates: start: 20240429, end: 20240429

REACTIONS (6)
  - Dermatitis atopic [Unknown]
  - Skin ulcer [Unknown]
  - Skin haemorrhage [Unknown]
  - Skin weeping [Unknown]
  - Skin fissures [Unknown]
  - Pain of skin [Unknown]

NARRATIVE: CASE EVENT DATE: 20240101
